FAERS Safety Report 4312869-X (Version None)
Quarter: 2004Q1

REPORT INFORMATION
  Report Type: 
  Country: None (occurrence: None)
  Receive Date: 20040304
  Receipt Date: 20040224
  Transmission Date: 20041129
  Serious: Yes (Other)
  Sender: FDA-Public Use
  Company Number: 2004012714

PATIENT

DRUGS (5)
  1. SULPERAZON (CEFOPERAZONE, SULBACTAM) [Suspect]
     Indication: CHOLECYSTITIS
     Dosage: 2 GRAM (BID), INTRAVENOUS
     Route: 042
     Dates: start: 20040217, end: 20040201
  2. MARZULENE S (LEVOGLUTAMIDE, SODIUM GUALENATE) [Concomitant]
  3. AMLODIPINE BESYLATE [Concomitant]
  4. BIOFERMIN (LACTOBACILLUS ACIDOPHOLUS, BACILLUS SUBTILIS, STREPTOCOCCUS [Concomitant]
  5. CEPHALOSPORIN C (CEPHALOSPORIN C) [Concomitant]

REACTIONS (2)
  - DIALYSIS [None]
  - RENAL FAILURE ACUTE [None]
